FAERS Safety Report 7496474-2 (Version None)
Quarter: 2011Q2

REPORT INFORMATION
  Report Type: 
  Country: None (occurrence: None)
  Receive Date: 20110523
  Receipt Date: 20110509
  Transmission Date: 20111010
  Serious: Yes (Death, Other)
  Sender: FDA-Public Use
  Company Number: JP-ROCHE-713515

PATIENT
  Sex: Female
  Weight: 37 kg

DRUGS (4)
  1. FLUOROURACIL [Concomitant]
     Route: 041
     Dates: start: 20100621, end: 20100623
  2. AVASTIN [Suspect]
     Indication: RECTAL CANCER METASTATIC
     Dosage: DISCONTINUED
     Route: 041
     Dates: start: 20100621, end: 20100621
  3. OXALIPLATIN [Concomitant]
     Route: 041
     Dates: start: 20100621, end: 20100621
  4. ISOVORIN [Concomitant]
     Route: 041
     Dates: start: 20100621, end: 20100623

REACTIONS (5)
  - AORTIC ANEURYSM RUPTURE [None]
  - AORTIC DISSECTION [None]
  - PNEUMONIA [None]
  - TRACHEAL FISTULA [None]
  - BLOOD ALKALINE PHOSPHATASE NORMAL [None]
